FAERS Safety Report 25036004 (Version 1)
Quarter: 2025Q1

REPORT INFORMATION
  Report Type: Report from Study
  Country: US (occurrence: US)
  Receive Date: 20250304
  Receipt Date: 20250304
  Transmission Date: 20250409
  Serious: No
  Sender: ACADIA PHARMACEUTICALS
  Company Number: US-ACADIA PHARMACEUTICALS INC.-ACA-2025-PIM-001798

PATIENT
  Age: 76 Year
  Sex: Female

DRUGS (20)
  1. NUPLAZID [Suspect]
     Active Substance: PIMAVANSERIN TARTRATE
     Indication: Parkinson^s disease
     Dosage: 34 MILLIGRAM, QD
     Route: 048
     Dates: start: 20240730
  2. NUPLAZID [Suspect]
     Active Substance: PIMAVANSERIN TARTRATE
     Indication: Hallucination
  3. ROSUVASTATIN [Concomitant]
     Active Substance: ROSUVASTATIN
  4. EZETIMIBE [Concomitant]
     Active Substance: EZETIMIBE
  5. ASPIRIN [Concomitant]
     Active Substance: ASPIRIN
  6. JARDIANCE [Concomitant]
     Active Substance: EMPAGLIFLOZIN
  7. ESCITALOPRAM [Concomitant]
     Active Substance: ESCITALOPRAM OXALATE
  8. VITAMIN D3 [Concomitant]
     Active Substance: CHOLECALCIFEROL
  9. BUPROPION [Concomitant]
     Active Substance: BUPROPION
  10. PANTOPRAZOLE [Concomitant]
     Active Substance: PANTOPRAZOLE
  11. LOSARTAN [Concomitant]
     Active Substance: LOSARTAN
  12. ROPINIROLE [Concomitant]
     Active Substance: ROPINIROLE
  13. CLOPIDOGREL [Concomitant]
     Active Substance: CLOPIDOGREL BISULFATE
  14. POTASSIUM GLUCONATE [Concomitant]
     Active Substance: POTASSIUM GLUCONATE
  15. COENZYME Q10 [Concomitant]
     Active Substance: DIETARY SUPPLEMENT\UBIDECARENONE
  16. VITAMIN E [Concomitant]
     Active Substance: .ALPHA.-TOCOPHEROL
  17. VITAMIN B COMPLEX [Concomitant]
     Active Substance: CYANOCOBALAMIN\DEXPANTHENOL\NIACINAMIDE\PYRIDOXINE HYDROCHLORIDE\RIBOFLAVIN 5^-PHOSPHATE SODIUM\THIA
  18. RIVASTIGMINE [Concomitant]
     Active Substance: RIVASTIGMINE
  19. LANTUS SOLOSTAR [Concomitant]
     Active Substance: INSULIN GLARGINE
  20. GLIPIZIDE [Concomitant]
     Active Substance: GLIPIZIDE

REACTIONS (1)
  - Urinary tract infection [Unknown]

NARRATIVE: CASE EVENT DATE: 20250122
